FAERS Safety Report 8517650-3 (Version None)
Quarter: 2012Q3

REPORT INFORMATION
  Report Type: 
  Country: None (occurrence: None)
  Receive Date: 20120718
  Receipt Date: 20120706
  Transmission Date: 20120928
  Serious: No
  Sender: FDA-Public Use
  Company Number: CA-JNJFOC-20120703567

PATIENT
  Sex: Female
  Weight: 80.5 kg

DRUGS (7)
  1. REMICADE [Suspect]
     Indication: HIDRADENITIS
     Dosage: THE LAST INFUSION WAS ON 06-JUN-2012.
     Route: 042
     Dates: start: 20090616
  2. CELEXA [Concomitant]
     Route: 065
  3. ENABLEX [Concomitant]
     Route: 065
  4. MULTIVITAMIN [Concomitant]
     Route: 065
  5. VITAMIN B-12 [Concomitant]
     Route: 065
  6. NAPROXEN [Concomitant]
     Route: 065
  7. PANTOPRAZOLE SODIUM [Concomitant]
     Route: 065

REACTIONS (1)
  - TOOTH ABSCESS [None]
